FAERS Safety Report 7559725-1 (Version None)
Quarter: 2011Q2

REPORT INFORMATION
  Report Type: 
  Country: None (occurrence: None)
  Receive Date: 20110621
  Receipt Date: 20110609
  Transmission Date: 20111010
  Serious: Yes (Hospitalization)
  Sender: FDA-Public Use
  Company Number: NL-ROCHE-781604

PATIENT
  Sex: Male
  Weight: 66 kg

DRUGS (16)
  1. PANTOPRAZOLE [Concomitant]
     Dates: start: 20090310
  2. PREDNISOLONE [Suspect]
     Route: 065
     Dates: start: 20090310
  3. BISOPROLOL FUMARATE [Concomitant]
     Dates: start: 20091229
  4. POLYSTYRENE SULFONATE [Concomitant]
     Dates: start: 20091013
  5. RITUXIMAB [Suspect]
     Indication: FOCAL SEGMENTAL GLOMERULOSCLEROSIS
     Route: 065
  6. PERINDOPRIL ERBUMINE [Concomitant]
     Dates: start: 20090323
  7. CINACALCET [Concomitant]
     Dates: start: 20091009
  8. AMLODIPINE [Concomitant]
     Dates: start: 20100615
  9. ACETYL SALICYLIC ACID COMPOUND TAB [Concomitant]
     Dates: start: 20090515
  10. TACROLIMUS [Suspect]
     Route: 065
     Dates: start: 20090311
  11. MYCOPHENOLATE MEFETIL [Suspect]
     Route: 065
     Dates: start: 20090311
  12. BLINDED RITUXIMAB [Suspect]
     Dosage: DOSE FREQUENCY: ONCE DOSAGE FORM: INFUSION
     Route: 042
     Dates: start: 20090310, end: 20090310
  13. FRUSEMID [Concomitant]
     Dates: start: 20091103
  14. PRAVASTATIN [Concomitant]
     Dates: start: 20090722
  15. MINOXIDIL [Concomitant]
     Dates: start: 20091229
  16. EPOGEN [Concomitant]
     Dosage: DOSE: 4000/PER WEEK
     Dates: start: 20100615

REACTIONS (2)
  - LUNG CANCER METASTATIC [None]
  - TUMOUR PAIN [None]
